FAERS Safety Report 8936882 (Version 1)
Quarter: 2012Q4

REPORT INFORMATION
  Report Type: 
  Country: FR (occurrence: FR)
  Receive Date: 20121130
  Receipt Date: 20121130
  Transmission Date: 20130627
  Serious: Yes (Other)
  Sender: FDA-Public Use
  Company Number: PHHY2012FR109948

PATIENT

DRUGS (1)
  1. FEMARA [Suspect]
     Dosage: 2.5 mg, QD
     Route: 048
     Dates: start: 20120907

REACTIONS (3)
  - Tendonitis [Not Recovered/Not Resolved]
  - Periarthritis [Not Recovered/Not Resolved]
  - Pain in extremity [Unknown]
